FAERS Safety Report 26070426 (Version 2)
Quarter: 2025Q4

REPORT INFORMATION
  Report Type: Spontaneous
  Country: US (occurrence: US)
  Receive Date: 20251120
  Receipt Date: 20251205
  Transmission Date: 20260118
  Serious: No
  Sender: MERZ
  Company Number: US-MRZWEB-2025110000045

PATIENT

DRUGS (3)
  1. XEOMIN [Suspect]
     Active Substance: INCOBOTULINUMTOXINA
     Indication: Skin cosmetic procedure
     Dosage: 42 INTERNATIONAL UNIT
  2. XEOMIN [Suspect]
     Active Substance: INCOBOTULINUMTOXINA
     Indication: Skin wrinkling
  3. XEOMIN [Suspect]
     Active Substance: INCOBOTULINUMTOXINA
     Indication: Skin cosmetic procedure

REACTIONS (6)
  - Blister [Recovering/Resolving]
  - Rash maculo-papular [Recovering/Resolving]
  - Injection site rash [Recovering/Resolving]
  - Joint swelling [Recovering/Resolving]
  - Erythema [Recovering/Resolving]
  - Product use in unapproved indication [Unknown]
